FAERS Safety Report 7672088-6 (Version None)
Quarter: 2011Q3

REPORT INFORMATION
  Report Type: 
  Country: None (occurrence: None)
  Receive Date: 20110809
  Receipt Date: 20110801
  Transmission Date: 20111222
  Serious: Yes (Hospitalization, Other)
  Sender: FDA-Public Use
  Company Number: PHHY2011DE70160

PATIENT
  Sex: Male
  Weight: 70 kg

DRUGS (6)
  1. MCP [Concomitant]
     Dosage: 20 MG, DAILY
     Dates: start: 20110101
  2. NOVALGIN [Concomitant]
     Dosage: 4000 MG, DAILY
  3. TRAMADOL HCL [Concomitant]
     Dosage: 400 MG, DAILY
     Route: 048
  4. ZOMETA [Suspect]
     Indication: METASTASES TO BONE
     Dosage: 4 MG/5 ML
     Route: 042
     Dates: start: 20110530
  5. CALCIUM CARBONATE [Concomitant]
     Dosage: 600 MG, DAILY
     Route: 048
  6. VITAMIN D [Concomitant]
     Route: 048

REACTIONS (5)
  - GASTRIC ULCER [None]
  - GENERAL PHYSICAL HEALTH DETERIORATION [None]
  - WEIGHT DECREASED [None]
  - PANCYTOPENIA [None]
  - SKIN HAEMORRHAGE [None]
